FAERS Safety Report 10220845 (Version 2)
Quarter: 2014Q2

REPORT INFORMATION
  Report Type: Spontaneous
  Country: ES (occurrence: ES)
  Receive Date: 20140606
  Receipt Date: 20140630
  Transmission Date: 20141212
  Serious: Yes (Other)
  Sender: FDA-Public Use
  Company Number: ES-JNJFOC-20140517119

PATIENT
  Sex: Male

DRUGS (1)
  1. NICORETTE BUCOMIST [Suspect]
     Indication: SMOKING CESSATION THERAPY
     Dosage: DOSE: 1 OR 2 SPRAYS
     Route: 002
     Dates: start: 201405, end: 201405

REACTIONS (2)
  - Respiratory disorder [Recovered/Resolved]
  - Throat irritation [Recovered/Resolved]
